FAERS Safety Report 8964751 (Version 1)
Quarter: 2012Q4

REPORT INFORMATION
  Report Type: 
  Country: US (occurrence: US)
  Receive Date: 20121214
  Receipt Date: 20121214
  Transmission Date: 20130627
  Serious: Yes (Hospitalization)
  Sender: FDA-Public Use
  Company Number: US-BAYER-US-SHR-03-009445

PATIENT
  Age: 43 Year
  Sex: Female
  Weight: 61.36 kg

DRUGS (6)
  1. YASMIN [Suspect]
     Dosage: 1 tab, 1x/day [Daily dose: 1 other]
     Route: 048
     Dates: start: 200211, end: 200212
  2. SERTRALINE HYDROCHLORIDE [Concomitant]
     Indication: MIGRAINE
     Dosage: UNK, UNK
  3. LORATADINE [Concomitant]
     Indication: SEASONAL ALLERGY
     Dosage: UNK, UNK
  4. DIFLUCAN [Concomitant]
     Dosage: 150 ng, UNK
  5. CELEBREX [Concomitant]
     Dosage: UNK UNK, PRN
  6. ALBUTEROL MDI [Concomitant]
     Dosage: UNK UNK, PRN

REACTIONS (2)
  - Pulmonary embolism [Recovered/Resolved]
  - Breast mass [None]
